FAERS Safety Report 9270879 (Version 1)
Quarter: 2013Q2

REPORT INFORMATION
  Report Type: Spontaneous
  Country: GB (occurrence: GB)
  Receive Date: 20130505
  Receipt Date: 20130505
  Transmission Date: 20140414
  Serious: Yes (Other)
  Sender: FDA-Public Use
  Company Number: GB-B.I. PHARMACEUTICALS,INC./RIDGEFIELD-2013-UK-00394UK

PATIENT
  Age: 63 Year
  Sex: Male
  Weight: 99 kg

DRUGS (6)
  1. TRAJENTA [Suspect]
     Indication: TYPE 2 DIABETES MELLITUS
     Dosage: 5 MG
     Route: 048
     Dates: start: 20121213, end: 20130222
  2. FELODIPINE [Concomitant]
     Indication: HYPERTENSION
     Dosage: 5 MG
     Route: 048
  3. DOXAZOSIN [Concomitant]
     Indication: HYPERTENSION
     Dosage: 4 MG
     Route: 048
  4. DULOXETINE [Concomitant]
     Dosage: 60 MG
     Route: 048
     Dates: start: 20121126
  5. AMITRIPTYLINE [Concomitant]
     Dosage: 10 MG
     Route: 048
     Dates: start: 20121108
  6. METFORMIN [Concomitant]
     Dosage: 2 G
     Route: 048
     Dates: start: 2011

REACTIONS (1)
  - Dry mouth [Recovered/Resolved]
